FAERS Safety Report 8087422 (Version 2)
Quarter: 2012Q4

REPORT INFORMATION
  Report Type: Report from Study
  Country: US (occurrence: US)
  Receive Date: 20110812
  Receipt Date: 20121022
  Transmission Date: 20130627
  Serious: Yes (Death, Hospitalization)
  Sender: FDA-Public Use
  Company Number: US-CELGENEUS-163-CCAZA-11080450

PATIENT
  Age: 61 Year
  Sex: Female
  Weight: 46.1 kg

DRUGS (27)
  1. AZACITIDINE INJECTABLE [Suspect]
     Indication: UTERINE CANCER
     Dosage: 100 milligram/sq. meter
     Route: 058
     Dates: start: 20110614, end: 20110614
  2. AZACITIDINE INJECTABLE [Suspect]
     Dosage: 75 milligram/sq. meter
     Route: 058
     Dates: start: 20110725, end: 20110725
  3. COMPAZINE [Concomitant]
     Indication: NAUSEA
     Dosage: 10 Milligram
     Route: 048
     Dates: start: 201011
  4. COLACE [Concomitant]
     Indication: CONSTIPATION
     Dosage: 100 Milligram
     Route: 048
     Dates: start: 201011
  5. SENNA [Concomitant]
     Indication: CONSTIPATION
     Dosage: 8.6 Milligram
     Route: 048
     Dates: start: 201011
  6. PATADAY [Concomitant]
     Indication: SEASONAL ALLERGY
     Dosage: .2 Percent
     Route: 047
     Dates: start: 20110509
  7. CALCIUM [Concomitant]
     Indication: SUPPLEMENTATION THERAPY
     Dosage: 1 Tablet
     Route: 048
     Dates: start: 201011
  8. SLOW MAG [Concomitant]
     Indication: SUPPLEMENTATION THERAPY
     Dosage: 2 Tablet
     Route: 048
     Dates: start: 201011
  9. VANCOMYCIN [Concomitant]
     Indication: DRUG USE FOR UNKNOWN INDICATION
     Route: 041
  10. ALBUMIN [Concomitant]
     Indication: DRUG USE FOR UNKNOWN INDICATION
     Dosage: 250 milliliter
     Route: 041
  11. BACITRACIN ZINC [Concomitant]
     Indication: DRUG USE FOR UNKNOWN INDICATION
     Dosage: 1 Application
     Route: 061
  12. ASPIRIN [Concomitant]
     Indication: DRUG USE FOR UNKNOWN INDICATION
     Dosage: 325 Milligram
     Route: 048
  13. CALCIUM GLUCONATE [Concomitant]
     Indication: DRUG USE FOR UNKNOWN INDICATION
     Dosage: 2 Gram
     Route: 041
  14. DEXTROSE 50% [Concomitant]
     Indication: DRUG USE FOR UNKNOWN INDICATION
     Dosage: 25 Gram
     Route: 041
  15. FENTANYL CITRATE [Concomitant]
     Indication: DRUG USE FOR UNKNOWN INDICATION
     Dosage: 5000mcg/250mL
     Route: 041
  16. HEPARIN [Concomitant]
     Indication: DRUG USE FOR UNKNOWN INDICATION
     Dosage: 5000 Unit
     Route: 058
  17. INSULIN [Concomitant]
     Indication: DRUG USE FOR UNKNOWN INDICATION
     Dosage: 10 Unit
     Route: 041
  18. KAYEXYLATE [Concomitant]
     Indication: DRUG USE FOR UNKNOWN INDICATION
     Dosage: 30 Gram
     Route: 065
  19. LORAZEPAM [Concomitant]
     Indication: DRUG USE FOR UNKNOWN INDICATION
     Dosage: .5 Milligram
     Route: 041
  20. METOPROLOL [Concomitant]
     Indication: DRUG USE FOR UNKNOWN INDICATION
     Route: 048
  21. MORPHINE SULFATE [Concomitant]
     Indication: DRUG USE FOR UNKNOWN INDICATION
     Route: 041
  22. ONDANSETRON HCL [Concomitant]
     Indication: DRUG USE FOR UNKNOWN INDICATION
     Dosage: 4 Milligram
     Route: 041
  23. PANTOPRAZOLE SODIUM [Concomitant]
     Indication: DRUG USE FOR UNKNOWN INDICATION
     Route: 041
  24. OXYCODONE/APAP [Concomitant]
     Indication: DRUG USE FOR UNKNOWN INDICATION
     Dosage: 2 Tablet
     Route: 048
  25. PIPERACILLIN/TAZOBACTAM/DEXTROSE [Concomitant]
     Indication: DRUG USE FOR UNKNOWN INDICATION
     Route: 041
  26. SCOPOLAMINE [Concomitant]
     Indication: DRUG USE FOR UNKNOWN INDICATION
     Route: 062
  27. SODIUM BICARBONATE [Concomitant]
     Indication: DRUG USE FOR UNKNOWN INDICATION
     Dosage: 50 Milliequivalents
     Route: 041

REACTIONS (3)
  - Renal failure acute [Fatal]
  - Hyponatraemia [Recovered/Resolved]
  - Back pain [Recovered/Resolved]
